FAERS Safety Report 4295807-8 (Version None)
Quarter: 2004Q1

REPORT INFORMATION
  Report Type: 
  Country: None (occurrence: None)
  Receive Date: 20040216
  Receipt Date: 20031110
  Transmission Date: 20041129
  Serious: No
  Sender: FDA-Public Use
  Company Number: US-GLAXOSMITHKLINE-A0439059A

PATIENT
  Age: 36 Year
  Sex: Female

DRUGS (4)
  1. LAMICTAL [Suspect]
     Indication: BIPOLAR DISORDER
     Dosage: 150MG TWICE PER DAY
     Route: 048
     Dates: start: 20030701
  2. GEODON [Concomitant]
  3. CELEXA [Concomitant]
  4. KLONOPIN [Concomitant]

REACTIONS (1)
  - EYE MOVEMENT DISORDER [None]
